FAERS Safety Report 5641625-5 (Version None)
Quarter: 2008Q1

REPORT INFORMATION
  Report Type: 
  Country: None (occurrence: None)
  Receive Date: 20080227
  Receipt Date: 20071224
  Transmission Date: 20080703
  Serious: No
  Sender: FDA-Public Use
  Company Number: A0700373A

PATIENT
  Age: 57 Year
  Sex: Female

DRUGS (2)
  1. NICORETTE [Suspect]
  2. COMMIT [Suspect]

REACTIONS (6)
  - ABDOMINAL PAIN UPPER [None]
  - BLOOD GLUCOSE INCREASED [None]
  - GINGIVAL PAIN [None]
  - HICCUPS [None]
  - INTENTIONAL DRUG MISUSE [None]
  - TOOTH DISORDER [None]
